FAERS Safety Report 6209004-X (Version None)
Quarter: 2009Q2

REPORT INFORMATION
  Report Type: 
  Country: None (occurrence: None)
  Receive Date: 20090529
  Receipt Date: 20090526
  Transmission Date: 20091009
  Serious: Yes (Death, Hospitalization)
  Sender: FDA-Public Use
  Company Number: PHHY2009CN20302

PATIENT
  Age: 21 Year
  Sex: Male

DRUGS (1)
  1. CYCLOSPORINE [Suspect]
     Indication: LARGE GRANULAR LYMPHOCYTOSIS
     Dosage: UNK
     Dates: start: 20060101

REACTIONS (4)
  - GASTROINTESTINAL HAEMORRHAGE [None]
  - GINGIVAL HYPERTROPHY [None]
  - LARGE GRANULAR LYMPHOCYTOSIS [None]
  - SEPTIC SHOCK [None]
